FAERS Safety Report 18129213 (Version 1)
Quarter: 2020Q3

REPORT INFORMATION
  Report Type: Spontaneous
  Country: US (occurrence: US)
  Receive Date: 20200810
  Receipt Date: 20200810
  Transmission Date: 20201103
  Serious: No
  Sender: FDA-Public Use
  Company Number: US-BAYER-2020-155263

PATIENT
  Age: 68 Year
  Sex: Male

DRUGS (10)
  1. CLARITIN [Suspect]
     Active Substance: LORATADINE
     Indication: PRURITUS
     Dosage: UNK
     Route: 048
     Dates: start: 20200109
  2. ADVAIR HFA [Concomitant]
     Active Substance: FLUTICASONE PROPIONATE\SALMETEROL XINAFOATE
  3. ATORVASTATIN [Concomitant]
     Active Substance: ATORVASTATIN
  4. SALBUTAMOL [Concomitant]
     Active Substance: ALBUTEROL
  5. SERTRALINE [Concomitant]
     Active Substance: SERTRALINE HYDROCHLORIDE
  6. BUSPIRONE [Concomitant]
     Active Substance: BUSPIRONE HYDROCHLORIDE
  7. VITAMIN D2 [Concomitant]
     Active Substance: ERGOCALCIFEROL
  8. ALPRAZOLAM. [Concomitant]
     Active Substance: ALPRAZOLAM
  9. SALBUTAMOL [Concomitant]
     Active Substance: ALBUTEROL
  10. DOXEPIN [Concomitant]
     Active Substance: DOXEPIN

REACTIONS (3)
  - Off label use [Unknown]
  - Product use in unapproved indication [Unknown]
  - Expired product administered [Unknown]

NARRATIVE: CASE EVENT DATE: 20200109
